FAERS Safety Report 6753080-2 (Version None)
Quarter: 2010Q2

REPORT INFORMATION
  Report Type: 
  Country: None (occurrence: None)
  Receive Date: 20100601
  Receipt Date: 20100524
  Transmission Date: 20101027
  Serious: Yes (Other)
  Sender: FDA-Public Use
  Company Number: AE-510-169

PATIENT
  Age: 57 Year
  Sex: Female

DRUGS (6)
  1. LIDODERM [Suspect]
     Indication: BACK PAIN
     Dosage: 1 PATCH A DAY; 6-8 MONTHS SINCE LATE 2006
  2. CATAPRES [Concomitant]
  3. MONOPRIL [Concomitant]
  4. COREG [Concomitant]
  5. RESTORIL [Concomitant]
  6. COUMADIN [Concomitant]

REACTIONS (1)
  - INTRACRANIAL ANEURYSM [None]
